FAERS Safety Report 9678911 (Version 1)
Quarter: 2013Q4

REPORT INFORMATION
  Report Type: Spontaneous
  Country: US (occurrence: None)
  Receive Date: 20131107
  Receipt Date: 20131107
  Transmission Date: 20140711
  Serious: Yes (Other)
  Sender: FDA-Public Use
  Company Number: ZYD-13-AE-307

PATIENT
  Age: 61 Year
  Sex: Male

DRUGS (9)
  1. LEVOFLOXACIN [Suspect]
     Indication: PYREXIA
     Route: 048
     Dates: start: 20131022, end: 20131030
  2. ASPIRIN 80MG [Concomitant]
  3. FLOMAX 0.4MG [Concomitant]
  4. LOSARTAN/HCTZ 100-12.5MG [Concomitant]
  5. METFORMIN 500MG [Concomitant]
  6. GLIPIZIDE 10MG [Concomitant]
  7. SINGULAIR 10MG [Concomitant]
  8. DILTIAZEM 40MG [Concomitant]
  9. PANTOPRAZOLE 40MG [Concomitant]

REACTIONS (2)
  - Muscle spasms [None]
  - Tendon rupture [None]
